FAERS Safety Report 20430096 (Version 1)
Quarter: 2022Q1

REPORT INFORMATION
  Report Type: Report from Study
  Country: FR (occurrence: FR)
  Receive Date: 20220204
  Receipt Date: 20220204
  Transmission Date: 20220423
  Serious: Yes (Hospitalization)
  Sender: FDA-Public Use
  Company Number: FR-SERVIER-S20002436

PATIENT

DRUGS (11)
  1. ONCASPAR [Suspect]
     Active Substance: PEGASPARGASE
     Indication: Acute lymphocytic leukaemia
     Dosage: 1425 IU, ON D15
     Route: 042
     Dates: start: 20180917
  2. VINCRISTINE [Suspect]
     Active Substance: VINCRISTINE
     Indication: Acute lymphocytic leukaemia
     Dosage: 0.8 MG, ON D15, D22
     Route: 042
     Dates: start: 20180914
  3. CYCLOPHOSPHAMIDE [Suspect]
     Active Substance: CYCLOPHOSPHAMIDE
     Indication: Acute lymphocytic leukaemia
     Dosage: 580 MG, ON D1, D29
     Route: 042
     Dates: start: 20180831
  4. CYTARABINE [Suspect]
     Active Substance: CYTARABINE
     Indication: Acute lymphocytic leukaemia
     Dosage: 43 MG QD FROM D3 TO D6, FROM D10 TO D13 AND FROM D30 TO D32
     Route: 042
     Dates: start: 20180802
  5. CYTARABINE [Suspect]
     Active Substance: CYTARABINE
     Dosage: 20 MG, ON D3
     Route: 037
     Dates: start: 20180902
  6. MERCAPTOPURINE [Suspect]
     Active Substance: MERCAPTOPURINE
     Indication: Acute lymphocytic leukaemia
     Dosage: 28 MG QD FROM D1 TO D14
     Route: 048
     Dates: start: 20180802
  7. METHOTREXATE [Suspect]
     Active Substance: METHOTREXATE
     Indication: Acute lymphocytic leukaemia
     Dosage: 8 MG ON D3, D31
     Route: 037
     Dates: start: 20180902
  8. HYDROCORTISONE [Suspect]
     Active Substance: HYDROCORTISONE
     Indication: Acute lymphocytic leukaemia
     Dosage: 10 MG ON D3
     Route: 037
     Dates: start: 20180902
  9. CEFTAZIDIME [Concomitant]
     Active Substance: CEFTAZIDIME
     Indication: Antibiotic therapy
     Dosage: 2.1 G
     Route: 042
     Dates: start: 20180822
  10. TARGOCID [Concomitant]
     Active Substance: TEICOPLANIN
     Indication: Antibiotic therapy
     Dosage: 240 MG
     Route: 042
     Dates: start: 20180822
  11. PERFALGAN [Concomitant]
     Active Substance: ACETAMINOPHEN
     Indication: Antipyresis
     Dosage: 1.2 G
     Route: 042

REACTIONS (2)
  - Klebsiella sepsis [Recovered/Resolved]
  - Staphylococcal sepsis [Recovered/Resolved]

NARRATIVE: CASE EVENT DATE: 20181009
